FAERS Safety Report 13280905 (Version 1)
Quarter: 2017Q1

REPORT INFORMATION
  Report Type: Spontaneous
  Country: JP (occurrence: JP)
  Receive Date: 20170301
  Receipt Date: 20170301
  Transmission Date: 20170428
  Serious: Yes (Hospitalization)
  Sender: FDA-Public Use
  Company Number: JP-ROCHE-1883096

PATIENT
  Age: 4 Year
  Sex: Female
  Weight: 17.25 kg

DRUGS (5)
  1. PREDONINE [Concomitant]
     Active Substance: PREDNISOLONE
     Indication: JUVENILE IDIOPATHIC ARTHRITIS
     Route: 065
     Dates: start: 20160220
  2. ALFAROL [Concomitant]
     Active Substance: ALFACALCIDOL
     Indication: OSTEOPOROSIS
     Route: 048
     Dates: start: 20160220
  3. BAKTAR [Concomitant]
     Active Substance: SULFAMETHOXAZOLE\TRIMETHOPRIM
     Indication: INFECTION SUSCEPTIBILITY INCREASED
     Route: 048
     Dates: start: 20160220
  4. ACTEMRA [Suspect]
     Active Substance: TOCILIZUMAB
     Indication: JUVENILE IDIOPATHIC ARTHRITIS
     Route: 041
     Dates: start: 20160420
  5. FAMOTIDINE. [Concomitant]
     Active Substance: FAMOTIDINE
     Indication: GASTRITIS EROSIVE
     Route: 048
     Dates: start: 20160220

REACTIONS (4)
  - Drug ineffective [Unknown]
  - Juvenile idiopathic arthritis [Recovering/Resolving]
  - Thoracic vertebral fracture [Not Recovered/Not Resolved]
  - Upper respiratory tract inflammation [Unknown]

NARRATIVE: CASE EVENT DATE: 20160606
